FAERS Safety Report 9601538 (Version 2)
Quarter: 2013Q4

REPORT INFORMATION
  Report Type: Spontaneous
  Country: US (occurrence: US)
  Receive Date: 20131007
  Receipt Date: 20131127
  Transmission Date: 20140711
  Serious: No
  Sender: FDA-Public Use
  Company Number: US-BIOGENIDEC-2013BI095175

PATIENT
  Sex: Male

DRUGS (9)
  1. TYSABRI [Suspect]
     Indication: MULTIPLE SCLEROSIS
     Route: 042
     Dates: start: 20130523, end: 20130913
  2. BACLOFEN [Concomitant]
     Route: 048
  3. COENZYME Q-10 [Concomitant]
     Route: 048
  4. FISH OIL [Concomitant]
     Route: 048
  5. NEURONTIN [Concomitant]
     Route: 048
  6. TRAZODONE [Concomitant]
     Route: 048
  7. VITAMIN D3 [Concomitant]
     Route: 048
  8. ZOLOFT [Concomitant]
  9. ZYPREXA [Concomitant]

REACTIONS (10)
  - Dysarthria [Unknown]
  - Speech disorder [Unknown]
  - Joint range of motion decreased [Unknown]
  - Dysphagia [Unknown]
  - Pseudobulbar palsy [Unknown]
  - Pain [Unknown]
  - Muscle spasms [Unknown]
  - Drug ineffective [Unknown]
  - Gait disturbance [Not Recovered/Not Resolved]
  - Spinal disorder [Not Recovered/Not Resolved]
